FAERS Safety Report 5901572-8 (Version None)
Quarter: 2008Q3

REPORT INFORMATION
  Report Type: 
  Country: None (occurrence: None)
  Receive Date: 20080926
  Receipt Date: 20080926
  Transmission Date: 20090109
  Serious: Yes (Hospitalization)
  Sender: FDA-Public Use
  Company Number: None

PATIENT
  Sex: Male

DRUGS (3)
  1. LITHIUM CARBONATE [Suspect]
     Dosage: 1/2 TABLET -225MG- BID PO
     Route: 048
     Dates: start: 20080825, end: 20080922
  2. LITHIUM CARBONATE [Suspect]
     Indication: SCHIZOPHRENIA
     Dosage: 1 TABLET BID PO
     Route: 048
     Dates: start: 20080916, end: 20080921
  3. LITHIUM CARBONATE [Suspect]

REACTIONS (2)
  - PHARMACEUTICAL PRODUCT COMPLAINT [None]
  - THERAPEUTIC AGENT TOXICITY [None]
